FAERS Safety Report 17831307 (Version 1)
Quarter: 2020Q2

REPORT INFORMATION
  Report Type: Spontaneous
  Country: US (occurrence: US)
  Receive Date: 20200528
  Receipt Date: 20200528
  Transmission Date: 20200714
  Serious: No
  Sender: FDA-Public Use
  Company Number: US-ROCHE-2479065

PATIENT
  Age: 52 Year
  Sex: Female
  Weight: 104.42 kg

DRUGS (4)
  1. BACLOFEN. [Concomitant]
     Active Substance: BACLOFEN
     Indication: MUSCLE SPASMS
     Dosage: 1 TABLET EVERY 8 HOURS AS NEEDED, 8 AS REQUIRED, FREQUENCY:1
     Route: 048
  2. OCREVUS [Suspect]
     Active Substance: OCRELIZUMAB
     Indication: RELAPSING-REMITTING MULTIPLE SCLEROSIS
     Dosage: DOSE: 300 MG ONCE IN 2 WEEKS, FOLLOWED BY 600 MG EVERY 6 MONTHS?NEXT DOSE RECEIVED ON 27/SEP/2019
     Route: 042
     Dates: start: 20190913
  3. GABAPENTIN. [Concomitant]
     Active Substance: GABAPENTIN
     Indication: MUSCLE SPASMS
  4. GABAPENTIN. [Concomitant]
     Active Substance: GABAPENTIN
     Indication: NEURALGIA

REACTIONS (6)
  - Blood alkaline phosphatase increased [Unknown]
  - Blood alkaline phosphatase increased [Not Recovered/Not Resolved]
  - Headache [Recovered/Resolved]
  - Pain [Recovering/Resolving]
  - Vitamin D decreased [Unknown]
  - Cough [Unknown]

NARRATIVE: CASE EVENT DATE: 20190927
